FAERS Safety Report 23783289 (Version 1)
Quarter: 2024Q2

REPORT INFORMATION
  Report Type: Spontaneous
  Country: US (occurrence: US)
  Receive Date: 20240425
  Receipt Date: 20240425
  Transmission Date: 20240716
  Serious: Yes (Other)
  Sender: FDA-Public Use
  Company Number: US-ELI_LILLY_AND_COMPANY-US202404013471

PATIENT
  Age: 68 Year
  Sex: Female

DRUGS (10)
  1. HUMULIN R U-500 [Suspect]
     Active Substance: INSULIN HUMAN
     Indication: Product used for unknown indication
     Dosage: 50 U, BID
     Route: 065
     Dates: start: 2009
  2. HUMULIN R U-500 [Suspect]
     Active Substance: INSULIN HUMAN
     Indication: Product used for unknown indication
     Dosage: 50 U, BID
     Route: 065
     Dates: start: 2009
  3. HUMULIN R U-500 [Suspect]
     Active Substance: INSULIN HUMAN
     Indication: Product used for unknown indication
     Dosage: 50 U, BID
     Route: 065
     Dates: start: 2009
  4. HUMULIN R U-500 [Suspect]
     Active Substance: INSULIN HUMAN
     Indication: Product used for unknown indication
     Dosage: 50 U, BID
     Route: 065
     Dates: start: 2009
  5. HUMULIN R U-500 [Suspect]
     Active Substance: INSULIN HUMAN
     Dosage: 50 U, BID
     Route: 065
  6. HUMULIN R U-500 [Suspect]
     Active Substance: INSULIN HUMAN
     Dosage: 50 U, BID
     Route: 065
  7. HUMULIN R U-500 [Suspect]
     Active Substance: INSULIN HUMAN
     Dosage: 50 U, BID
     Route: 065
  8. HUMULIN R U-500 [Suspect]
     Active Substance: INSULIN HUMAN
     Dosage: 50 U, BID
     Route: 065
  9. HUMULIN R U-500 [Suspect]
     Active Substance: INSULIN HUMAN
     Dosage: 50 U, BID
     Route: 065
  10. HUMULIN R U-500 [Suspect]
     Active Substance: INSULIN HUMAN
     Dosage: 50 U, BID
     Route: 065

REACTIONS (2)
  - Blindness unilateral [Unknown]
  - Concussion [Unknown]
